FAERS Safety Report 6426757-6 (Version None)
Quarter: 2009Q4

REPORT INFORMATION
  Report Type: 
  Country: None (occurrence: None)
  Receive Date: 20091030
  Receipt Date: 20091012
  Transmission Date: 20100525
  Serious: Yes (Hospitalization)
  Sender: FDA-Public Use
  Company Number: WAES 0910USA03366

PATIENT
  Age: 50 Year
  Sex: Male

DRUGS (3)
  1. PRINIVIL [Suspect]
     Indication: HYPERTENSION
     Dosage: PO
     Route: 048
     Dates: start: 20090529, end: 20090915
  2. DAPAGLIFLOZIN UNK [Suspect]
     Indication: TYPE 2 DIABETES MELLITUS
     Dosage: PO
     Route: 048
     Dates: start: 20080416
  3. ALEVE [Concomitant]

REACTIONS (5)
  - ANGIOEDEMA [None]
  - HYPERTENSION [None]
  - INFECTED CYST [None]
  - PILONIDAL CYST [None]
  - STAPHYLOCOCCAL INFECTION [None]
